FAERS Safety Report 10424915 (Version 1)
Quarter: 2014Q3

REPORT INFORMATION
  Report Type: Spontaneous
  Country: US (occurrence: None)
  Receive Date: 20140725
  Receipt Date: 20140725
  Transmission Date: 20150326
  Serious: No
  Sender: FDA-Public Use
  Company Number: AP356-00719-SPO-US

PATIENT
  Age: 52 Year
  Sex: Female
  Weight: 123 kg

DRUGS (19)
  1. VITAMIN B 12 (CYANOCOBALAMIN) [Concomitant]
  2. TRAZODONE [Concomitant]
     Active Substance: TRAZODONE HYDROCHLORIDE
  3. CLOPIDOGREL BISULPHATE (CLOPIDOGREL SULFATE) [Concomitant]
  4. VITAMIN C [Concomitant]
     Active Substance: ASCORBIC ACID
  5. CALCIUM WITH VITAMIN D (CALCIUM D) [Concomitant]
  6. BELVIQ [Suspect]
     Active Substance: LORCASERIN HYDROCHLORIDE
     Indication: WEIGHT DECREASED
     Route: 048
     Dates: start: 20140421, end: 20140505
  7. VITAMIN B6 [Concomitant]
     Active Substance: PYRIDOXINE HYDROCHLORIDE
  8. ALPRAZOLAM. [Concomitant]
     Active Substance: ALPRAZOLAM
  9. SIMVASTATIN. [Concomitant]
     Active Substance: SIMVASTATIN
  10. CINNAMON (CINNAMOMUM VERUM) [Concomitant]
  11. HCTZ (HYDROCHLOROTHIAZIDE) [Concomitant]
     Active Substance: HYDROCHLOROTHIAZIDE
  12. CROMIUM PICOLINATE (HERBAL PREPARATION) [Concomitant]
  13. HUMALOG [Concomitant]
     Active Substance: INSULIN LISPRO
  14. LORATADINE. [Concomitant]
     Active Substance: LORATADINE
  15. METFORMIN [Concomitant]
     Active Substance: METFORMIN HYDROCHLORIDE
  16. GLUCOSAMINE WITH MSN (GLUCOSAMINE W/ METHYLSULFONYLMETHANE) [Concomitant]
  17. IRBESARTAN. [Concomitant]
     Active Substance: IRBESARTAN
  18. DICLUFAN (FLUCONAZOLE) [Concomitant]
  19. NYSTATIN. [Concomitant]
     Active Substance: NYSTATIN

REACTIONS (1)
  - Peripheral swelling [None]

NARRATIVE: CASE EVENT DATE: 20140505
